FAERS Safety Report 15840334 (Version 2)
Quarter: 2019Q1

REPORT INFORMATION
  Report Type: Report from Study
  Country: None (occurrence: BR)
  Receive Date: 20190117
  Receipt Date: 20190319
  Transmission Date: 20190417
  Serious: Yes (Other)
  Sender: FDA-Public Use
  Company Number: BR-ABBVIE-19P-020-2627816-00

PATIENT
  Age: 23 Day
  Sex: Female

DRUGS (1)
  1. DEPAKOTE [Suspect]
     Active Substance: DIVALPROEX SODIUM
     Indication: SEIZURE
     Dosage: TREATMENT LASTED TOTAL OF 6 MONTHS;FORM OF ADMINISTRATION WAS LIQUID,DOSE WAS SOME DROPS.
     Route: 048
     Dates: start: 201101, end: 201106

REACTIONS (3)
  - Product use issue [Unknown]
  - Seizure [Recovered/Resolved]
  - Off label use [Unknown]

NARRATIVE: CASE EVENT DATE: 20110119
